FAERS Safety Report 14742919 (Version 1)
Quarter: 2018Q2

REPORT INFORMATION
  Report Type: Spontaneous
  Country: GB (occurrence: FR)
  Receive Date: 20180410
  Receipt Date: 20180410
  Transmission Date: 20180711
  Serious: Yes (Other)
  Sender: FDA-Public Use
  Company Number: FR-FRESENIUS KABI-FK201804159

PATIENT
  Age: 44 Year
  Sex: Male
  Weight: 96 kg

DRUGS (4)
  1. CLOXACILLINE [Suspect]
     Active Substance: CLOXACILLIN
     Indication: OSTEOMYELITIS
     Route: 065
     Dates: start: 20140131, end: 20140211
  2. LYRICA [Concomitant]
     Active Substance: PREGABALIN
     Indication: PAIN
     Route: 048
  3. CLINDAMYCIN. [Suspect]
     Active Substance: CLINDAMYCIN
     Indication: OSTEOMYELITIS
     Route: 065
     Dates: start: 20140131, end: 20140211
  4. VANCOMYCIN (MANUFACTURER UNKNOWN) [Suspect]
     Active Substance: VANCOMYCIN
     Indication: OSTEOMYELITIS
     Route: 041
     Dates: start: 20140131, end: 20140204

REACTIONS (1)
  - Acute kidney injury [Recovered/Resolved]

NARRATIVE: CASE EVENT DATE: 20140131
